FAERS Safety Report 19413586 (Version 1)
Quarter: 2021Q2

REPORT INFORMATION
  Report Type: Spontaneous
  Country: FR (occurrence: FR)
  Receive Date: 20210614
  Receipt Date: 20210614
  Transmission Date: 20210717
  Serious: Yes (Other)
  Sender: FDA-Public Use
  Company Number: FR-ELI_LILLY_AND_COMPANY-FR202106001465

PATIENT
  Age: 63 Year
  Sex: Female
  Weight: 61 kg

DRUGS (11)
  1. LYNPARZA [Suspect]
     Active Substance: OLAPARIB
     Indication: OVARIAN CANCER RECURRENT
     Dosage: UNK, UNKNOWN
     Route: 048
     Dates: start: 201411, end: 201502
  2. CARBOPLATINE [Suspect]
     Active Substance: CARBOPLATIN
     Indication: OVARIAN CANCER RECURRENT
     Dosage: 6 CURES
     Route: 042
     Dates: start: 20140801, end: 20141114
  3. CAELYX [Suspect]
     Active Substance: DOXORUBICIN HYDROCHLORIDE
     Indication: OVARIAN CANCER RECURRENT
     Dosage: 4 CURES
     Route: 042
     Dates: start: 20200917, end: 20201210
  4. CARBOPLATINE [Suspect]
     Active Substance: CARBOPLATIN
     Dosage: 4 CURES
     Route: 042
     Dates: start: 20160211, end: 20160503
  5. GEMCITABINE HYDROCHLORIDE. [Suspect]
     Active Substance: GEMCITABINE HYDROCHLORIDE
     Indication: OVARIAN CANCER RECURRENT
     Dosage: 7 CURES
     Route: 042
     Dates: start: 20160211, end: 20160503
  6. LYNPARZA [Suspect]
     Active Substance: OLAPARIB
     Dosage: 400MG MORNING AND NIGHT
     Route: 048
     Dates: start: 201712, end: 202009
  7. CARBOPLATINE [Suspect]
     Active Substance: CARBOPLATIN
     Dosage: 6 CURES
     Route: 042
     Dates: start: 20170629, end: 20171128
  8. CARBOPLATINE [Suspect]
     Active Substance: CARBOPLATIN
     Dosage: 4 CURES
     Route: 042
     Dates: start: 20200917, end: 20201210
  9. PACLITAXEL. [Suspect]
     Active Substance: PACLITAXEL
     Indication: OVARIAN CANCER RECURRENT
     Dosage: 14 DOSES ? J1, J8, J15 (CYCLES DE 28 JOURS)
     Route: 042
     Dates: start: 20170629, end: 20171205
  10. AVASTIN [ATORVASTATIN CALCIUM] [Suspect]
     Active Substance: ATORVASTATIN CALCIUM
     Indication: OVARIAN CANCER RECURRENT
     Dosage: 23 CURES
     Route: 042
     Dates: start: 20160211, end: 20170530
  11. PACLITAXEL. [Suspect]
     Active Substance: PACLITAXEL
     Dosage: 6 CURES
     Route: 042
     Dates: start: 20140808, end: 20141114

REACTIONS (1)
  - Myelodysplastic syndrome [Not Recovered/Not Resolved]

NARRATIVE: CASE EVENT DATE: 20210125
